FAERS Safety Report 4357804-3 (Version None)
Quarter: 2004Q2

REPORT INFORMATION
  Report Type: 
  Country: None (occurrence: None)
  Receive Date: 20040513
  Receipt Date: 20040510
  Transmission Date: 20050107
  Serious: Yes (Hospitalization)
  Sender: FDA-Public Use
  Company Number: GB-MERCK-0405GBR00061

PATIENT
  Age: 70 Year
  Sex: Female

DRUGS (5)
  1. ACETAMINOPHEN [Concomitant]
     Route: 048
  2. ATENOLOL [Concomitant]
     Route: 048
  3. DIHYDROCODEINE [Concomitant]
     Route: 048
  4. VIOXX [Suspect]
     Route: 048
     Dates: start: 20040315, end: 20040417
  5. SIMVASTATIN [Concomitant]
     Route: 048

REACTIONS (3)
  - MYOCARDIAL INFARCTION [None]
  - OEDEMA PERIPHERAL [None]
  - PAIN IN EXTREMITY [None]
